FAERS Safety Report 10145053 (Version 2)
Quarter: 2016Q2

REPORT INFORMATION
  Report Type: Report from Study
  Country: AT (occurrence: AT)
  Receive Date: 20140501
  Receipt Date: 20160523
  Transmission Date: 20160815
  Serious: Yes (Life-Threatening, Hospitalization, Disabling)
  Sender: FDA-Public Use
  Company Number: AT-ROCHE-1380128

PATIENT
  Age: 38 Year
  Sex: Female
  Weight: 62 kg

DRUGS (8)
  1. ERYPO [Concomitant]
     Dosage: 3X 10000 PER WEEK FOR 2 WEEKS.
     Route: 058
  2. RIBAVIRIN. [Suspect]
     Active Substance: RIBAVIRIN
     Route: 065
  3. RIBAVIRIN. [Suspect]
     Active Substance: RIBAVIRIN
     Route: 065
  4. RIBAVIRIN. [Suspect]
     Active Substance: RIBAVIRIN
     Route: 065
     Dates: start: 20090622
  5. PEG-INTERFERON ALFA 2A [Suspect]
     Active Substance: PEGINTERFERON ALFA-2A
     Indication: HEPATITIS C
     Route: 065
     Dates: start: 20090515, end: 20090916
  6. PEG-INTERFERON ALFA 2A [Suspect]
     Active Substance: PEGINTERFERON ALFA-2A
     Route: 065
     Dates: start: 20090916, end: 20091216
  7. RIBAVIRIN. [Suspect]
     Active Substance: RIBAVIRIN
     Indication: HEPATITIS C
     Route: 065
     Dates: start: 20090515, end: 20090916
  8. INSULIN [Concomitant]
     Active Substance: INSULIN NOS

REACTIONS (9)
  - Renal failure [Not Recovered/Not Resolved]
  - Rash pruritic [Not Recovered/Not Resolved]
  - Thrombocytopenia [Not Recovered/Not Resolved]
  - Pulmonary oedema [Unknown]
  - Leukopenia [Not Recovered/Not Resolved]
  - Anaemia [Not Recovered/Not Resolved]
  - Dyspnoea [Unknown]
  - Pancytopenia [Unknown]
  - Lymphopenia [Not Recovered/Not Resolved]

NARRATIVE: CASE EVENT DATE: 20090609
